FAERS Safety Report 9128445 (Version 2)
Quarter: 2014Q1

REPORT INFORMATION
  Report Type: Report from Study
  Country: US (occurrence: US)
  Receive Date: 20130125
  Receipt Date: 20140101
  Transmission Date: 20141002
  Serious: Yes (Other)
  Sender: FDA-Public Use
  Company Number: US-US-EMD SERONO, INC.-7188359

PATIENT
  Sex: Male
  Weight: 89 kg

DRUGS (31)
  1. SEROSTIM [(SOMATROPIN (RDNA ORIGIN) FOR INJECTION)] [Suspect]
     Indication: HIV WASTING SYNDROME
  2. ACYCLOVIR [Concomitant]
     Indication: PRODUCT USED FOR UNKNOWN INDICATION
     Route: 048
     Dates: start: 20130528
  3. CIALIS [Concomitant]
     Indication: PRODUCT USED FOR UNKNOWN INDICATION
     Route: 048
  4. CIALIS [Concomitant]
     Route: 048
     Dates: start: 20131030
  5. DILAUDID [Concomitant]
     Indication: FIBROMYALGIA
     Route: 048
     Dates: start: 20131025
  6. DIAZEPAM [Concomitant]
     Indication: PRODUCT USED FOR UNKNOWN INDICATION
     Route: 048
     Dates: start: 20131203
  7. LORAZEPAM [Concomitant]
     Indication: PRODUCT USED FOR UNKNOWN INDICATION
     Route: 048
     Dates: start: 20131203
  8. VICOPROFEN [Concomitant]
     Indication: PAIN
     Route: 048
  9. TESTOSTERONE CYPIONATE [Concomitant]
     Indication: PRODUCT USED FOR UNKNOWN INDICATION
     Route: 030
     Dates: start: 2009
  10. TESTOSTERONE CYPIONATE [Concomitant]
     Route: 030
     Dates: start: 20131203
  11. NORVIR [Concomitant]
     Indication: PRODUCT USED FOR UNKNOWN INDICATION
     Route: 048
  12. NORVIR [Concomitant]
     Route: 048
     Dates: start: 20130828
  13. EPIVIR HBV [Concomitant]
     Indication: PRODUCT USED FOR UNKNOWN INDICATION
     Route: 048
  14. PNEUMOCOCCAL POLYSACCHARIDE VACCINE [Concomitant]
     Indication: PNEUMONIA
     Dates: start: 19990615
  15. PNEUMOCOCCAL POLYSACCHARIDE VACCINE [Concomitant]
     Dates: start: 20071119
  16. HEPATITIS B VACCINE [Concomitant]
     Indication: HEPATITIS B
     Dates: start: 20040213
  17. HEPATITIS B VACCINE [Concomitant]
     Dates: start: 20040412
  18. HEPATITIS B VACCINE [Concomitant]
     Dates: start: 20041025
  19. HEPATITIS A VACCINE [Concomitant]
     Indication: HEPATITIS A
     Dates: start: 20040412
  20. HEPATITIS A VACCINE [Concomitant]
     Dates: start: 20080215
  21. ATORVASTATIN [Concomitant]
     Indication: PRODUCT USED FOR UNKNOWN INDICATION
     Route: 048
     Dates: start: 20130911
  22. DAPSONE [Concomitant]
     Indication: PRODUCT USED FOR UNKNOWN INDICATION
     Route: 048
     Dates: start: 20131209
  23. DAPSONE [Concomitant]
     Route: 048
     Dates: start: 20131104, end: 20131216
  24. LAMIVUDINE [Concomitant]
     Indication: PRODUCT USED FOR UNKNOWN INDICATION
     Route: 048
     Dates: start: 20131209
  25. LYRICA [Concomitant]
     Indication: PRODUCT USED FOR UNKNOWN INDICATION
     Route: 048
     Dates: start: 20130828
  26. METOPROLOL TARTRATE [Concomitant]
     Indication: PRODUCT USED FOR UNKNOWN INDICATION
     Route: 048
  27. NITROGLYCERIN [Concomitant]
     Indication: PRODUCT USED FOR UNKNOWN INDICATION
     Route: 060
     Dates: start: 20130711
  28. PANTOPRAZOLE [Concomitant]
     Indication: PRODUCT USED FOR UNKNOWN INDICATION
     Route: 048
     Dates: start: 20130911
  29. SEPTRA DS [Concomitant]
     Indication: PRODUCT USED FOR UNKNOWN INDICATION
     Dosage: 800 MG-160 MG
     Dates: start: 20130920
  30. SINGULAIR                          /01362601/ [Concomitant]
     Indication: PRODUCT USED FOR UNKNOWN INDICATION
     Dates: start: 20130215
  31. VITAMIN B12                        /00056201/ [Concomitant]
     Indication: PRODUCT USED FOR UNKNOWN INDICATION
     Route: 030
     Dates: start: 20130215

REACTIONS (5)
  - Coronary artery disease [Unknown]
  - Dermal cyst [Unknown]
  - Anxiety [Unknown]
  - Depression [Unknown]
  - Thrombocytopenia [Unknown]
